FAERS Safety Report 5591099-8 (Version None)
Quarter: 2008Q1

REPORT INFORMATION
  Report Type: 
  Country: None (occurrence: None)
  Receive Date: 20080115
  Receipt Date: 20080111
  Transmission Date: 20080703
  Serious: Yes (Life-Threatening, Hospitalization)
  Sender: FDA-Public Use
  Company Number: PHRM2008FR00531

PATIENT
  Age: 87 Year
  Sex: Female

DRUGS (14)
  1. EFFEXOR [Concomitant]
     Dosage: 2 DF, QD
     Route: 048
     Dates: end: 20070515
  2. ALPRAZOLAM [Concomitant]
     Dosage: 2 DF, QD
     Route: 048
     Dates: end: 20070515
  3. ESOMEPRAZOLE (INEXIUM) [Concomitant]
     Dosage: 1 DF, QD
     Route: 048
     Dates: end: 20070515
  4. TAREG [Suspect]
     Dosage: 1 DF, QD
     Route: 048
     Dates: end: 20070515
  5. NEURONTIN [Concomitant]
     Indication: HERPES ZOSTER OPHTHALMIC
     Dosage: 300 MG, QD
     Route: 048
     Dates: start: 20070511, end: 20070515
  6. TRAMADOL HCL [Concomitant]
     Indication: HERPES ZOSTER OPHTHALMIC
     Dosage: 2 DF, QD
     Route: 048
     Dates: start: 20070511, end: 20070515
  7. ZELITREX [Suspect]
     Indication: HERPES ZOSTER OPHTHALMIC
     Dosage: 6 DF, QD
     Route: 048
     Dates: start: 20070511, end: 20070515
  8. LEVOTHYROX [Concomitant]
     Dosage: 75 UG, QD
     Route: 048
     Dates: end: 20070515
  9. ARICEPT [Concomitant]
     Dosage: 1 DF, QD
     Route: 048
     Dates: end: 20070515
  10. MEMANTINE HCL [Concomitant]
     Dosage: 1 DF, QD
     Route: 048
     Dates: end: 20070515
  11. NEULEPTIL [Concomitant]
     Dosage: 6 DRP, QD
     Route: 048
     Dates: end: 20070515
  12. ZOPICLONE [Concomitant]
     Dosage: 1 DF, QD
     Route: 048
     Dates: end: 20070515
  13. CALCIUM WITH VITAMIN D3 [Concomitant]
     Dosage: 1 DF, QD
     Dates: end: 20070515
  14. PARACETAMOL [Concomitant]
     Indication: HERPES ZOSTER OPHTHALMIC
     Dosage: 1 G, QID
     Route: 048
     Dates: start: 20070511, end: 20070515

REACTIONS (26)
  - ACUTE RESPIRATORY DISTRESS SYNDROME [None]
  - ALTERED STATE OF CONSCIOUSNESS [None]
  - BLOOD CREATINE PHOSPHOKINASE INCREASED [None]
  - BLOOD CREATININE INCREASED [None]
  - COMA [None]
  - CONJUNCTIVITIS [None]
  - CYTOLYTIC HEPATITIS [None]
  - DEHYDRATION [None]
  - DISTURBANCE IN ATTENTION [None]
  - FLUID REPLACEMENT [None]
  - GLASGOW COMA SCALE ABNORMAL [None]
  - HERPES ZOSTER OPHTHALMIC [None]
  - HYPERCAPNIA [None]
  - HYPERHIDROSIS [None]
  - HYPERKALAEMIA [None]
  - HYPOXIA [None]
  - INFLAMMATION [None]
  - LUNG DISORDER [None]
  - METABOLIC ACIDOSIS [None]
  - OXYGEN SATURATION DECREASED [None]
  - PERIPHERAL VASCULAR DISORDER [None]
  - PROTHROMBIN TIME SHORTENED [None]
  - RENAL FAILURE ACUTE [None]
  - RESPIRATORY ACIDOSIS [None]
  - SHOCK [None]
  - SODIUM RETENTION [None]
